FAERS Safety Report 9626968 (Version 2)
Quarter: 2013Q4

REPORT INFORMATION
  Report Type: Spontaneous
  Country: JP (occurrence: JP)
  Receive Date: 20131016
  Receipt Date: 20131028
  Transmission Date: 20140711
  Serious: Yes (Other)
  Sender: FDA-Public Use
  Company Number: PHHY2013JP115643

PATIENT
  Age: 72 Year
  Sex: Female

DRUGS (2)
  1. FEMARA [Suspect]
     Indication: METASTASES TO BONE
     Dosage: 2.5 MG, DAILY
     Route: 048
  2. WARFARIN [Concomitant]
     Indication: THROMBOSIS
     Dosage: UNK UKN, UNK
     Route: 048

REACTIONS (6)
  - Poor peripheral circulation [Unknown]
  - Thrombosis [Unknown]
  - Diplopia [Unknown]
  - Visual field defect [Unknown]
  - Vision blurred [Unknown]
  - Headache [Unknown]
